FAERS Safety Report 21602629 (Version 2)
Quarter: 2022Q4

REPORT INFORMATION
  Report Type: Other
  Country: US (occurrence: US)
  Receive Date: 20221116
  Receipt Date: 20221221
  Transmission Date: 20230112
  Serious: Yes (Other)
  Sender: FDA-Public Use
  Company Number: US-INTERCEPT-PM2022001769

PATIENT
  Age: 64 Year
  Sex: Female

DRUGS (5)
  1. OCALIVA [Suspect]
     Active Substance: OBETICHOLIC ACID
     Indication: Primary biliary cholangitis
     Dosage: 5 MILLIGRAM, QD
     Route: 048
     Dates: start: 201802, end: 2018
  2. OCALIVA [Suspect]
     Active Substance: OBETICHOLIC ACID
     Indication: Product use in unapproved indication
     Dosage: 5 MILLIGRAM, QW
     Route: 048
     Dates: start: 20180405
  3. OCALIVA [Suspect]
     Active Substance: OBETICHOLIC ACID
     Dosage: 5 MILLIGRAM, QOD
     Route: 048
     Dates: start: 20210601
  4. OCALIVA [Suspect]
     Active Substance: OBETICHOLIC ACID
     Dosage: 5 MILLIGRAM, QD
     Route: 048
  5. URSODIOL [Concomitant]
     Active Substance: URSODIOL
     Dosage: 750 MILLIGRAM, BID
     Route: 048
     Dates: start: 201803

REACTIONS (6)
  - Hypokalaemia [Unknown]
  - COVID-19 [Recovered/Resolved]
  - Asthma [Unknown]
  - Hypomagnesaemia [Unknown]
  - Chills [Unknown]
  - Pyrexia [Unknown]

NARRATIVE: CASE EVENT DATE: 20210823
